FAERS Safety Report 7224532-6 (Version None)
Quarter: 2011Q1

REPORT INFORMATION
  Report Type: 
  Country: None (occurrence: None)
  Receive Date: 20110113
  Receipt Date: 20100712
  Transmission Date: 20110831
  Serious: Yes (Other)
  Sender: FDA-Public Use
  Company Number: US-BAYER-201023107NA

PATIENT
  Sex: Female
  Weight: 45 kg

DRUGS (27)
  1. BUSPON [BUSPIRONE HYDROCHLORIDE] [Concomitant]
  2. FLUOXETINE HCL [Concomitant]
  3. NEUTRA-PHOS [Concomitant]
  4. ANTIBIOTICS [Concomitant]
  5. HYOSCYAMINE SULFATE [Concomitant]
  6. SKELAXIN [Concomitant]
  7. BUSPIRON [BUSPIRONE HYDROCHLORIDE] [Concomitant]
  8. K-DUR [Concomitant]
  9. REGLAN [Concomitant]
  10. YASMIN [Suspect]
     Dosage: ACCORDING TO PHARMACY RECORDS
     Route: 048
     Dates: start: 20051206, end: 20080425
  11. YASMIN [Suspect]
     Dosage: ACCORDING TO PHARMACY RECORDS
     Route: 048
     Dates: start: 20051206, end: 20080425
  12. CEPHALEXIN [Concomitant]
  13. UNCODEABLE ^UNCLASSIFIABLE^ [Concomitant]
  14. PRILOSEC [Concomitant]
  15. NSAID'S [Concomitant]
  16. ST. JOHNS WORT [Concomitant]
  17. ZOLOFT [Concomitant]
  18. PAROXETINE HCL [Concomitant]
  19. YAZ [Suspect]
     Indication: CONTRACEPTION
     Route: 048
     Dates: start: 20070301, end: 20090501
  20. AMITRIPTYLINE HCL [Concomitant]
  21. PHENERGAN [Concomitant]
     Dosage: UNK
     Dates: start: 20061230
  22. PAROXETINE HCL [Concomitant]
  23. YASMIN [Suspect]
     Indication: CONTRACEPTION
     Dosage: REPORTED BY THE CONSUMER
     Route: 048
     Dates: start: 20030101, end: 20040101
  24. UNKNOWN DRUG [Concomitant]
     Indication: MIGRAINE
  25. AZITHROMYCIN [Concomitant]
  26. PROMETHEGAN [Concomitant]
     Dosage: AS USED DOSE: SU
  27. CIPROFLOXACIN HCL [Concomitant]

REACTIONS (9)
  - GALLBLADDER CHOLESTEROLOSIS [None]
  - NAUSEA [None]
  - CHOLECYSTITIS CHRONIC [None]
  - BILIARY COLIC [None]
  - MIGRAINE [None]
  - ABDOMINAL PAIN UPPER [None]
  - ANXIETY [None]
  - DIARRHOEA [None]
  - DEPRESSION [None]
